FAERS Safety Report 5956633-4 (Version None)
Quarter: 2008Q4

REPORT INFORMATION
  Report Type: 
  Country: None (occurrence: None)
  Receive Date: 20081031
  Receipt Date: 20080728
  Transmission Date: 20090506
  Serious: No
  Sender: FDA-Public Use
  Company Number: 2008PV036305

PATIENT
  Age: 44 Year
  Sex: Female
  Weight: 75.2971 kg

DRUGS (5)
  1. SYMLIN [Suspect]
     Indication: TYPE 1 DIABETES MELLITUS
     Dosage: 45 MCG;X1;SC
     Route: 058
     Dates: start: 20080719, end: 20080719
  2. SYMLIN [Suspect]
     Indication: TYPE 1 DIABETES MELLITUS
     Dosage: 24 MCG;TID;SC : 24 MCG;TID;SC : 30 MCG;TID;SC
     Route: 058
     Dates: start: 20060701, end: 20061001
  3. SYMLIN [Suspect]
     Indication: TYPE 1 DIABETES MELLITUS
     Dosage: 24 MCG;TID;SC : 24 MCG;TID;SC : 30 MCG;TID;SC
     Route: 058
     Dates: start: 20061001, end: 20080718
  4. SYMLIN [Suspect]
     Indication: TYPE 1 DIABETES MELLITUS
     Dosage: 24 MCG;TID;SC : 24 MCG;TID;SC : 30 MCG;TID;SC
     Route: 058
     Dates: start: 20080720
  5. HUMALOG [Concomitant]

REACTIONS (2)
  - BLOOD GLUCOSE DECREASED [None]
  - BLOOD GLUCOSE INCREASED [None]
